FAERS Safety Report 24769411 (Version 1)
Quarter: 2024Q4

REPORT INFORMATION
  Report Type: Spontaneous
  Country: GB (occurrence: GB)
  Receive Date: 20241224
  Receipt Date: 20241224
  Transmission Date: 20250115
  Serious: Yes (Other)
  Sender: TAKEDA
  Company Number: GB-TAKEDA-2024TUS128480

PATIENT
  Age: 75 Year
  Sex: Female
  Weight: 66.7 kg

DRUGS (1)
  1. ENTYVIO [Suspect]
     Active Substance: VEDOLIZUMAB
     Indication: Colitis
     Dosage: 300 MILLIGRAM, Q4WEEKS

REACTIONS (3)
  - Colitis [Unknown]
  - Inappropriate schedule of product administration [Unknown]
  - Weight decreased [Unknown]
